FAERS Safety Report 25760933 (Version 1)
Quarter: 2025Q3

REPORT INFORMATION
  Report Type: Report from Study
  Country: BR (occurrence: BR)
  Receive Date: 20250904
  Receipt Date: 20250904
  Transmission Date: 20251021
  Serious: Yes (Other)
  Sender: JOHNSON AND JOHNSON
  Company Number: BR-JNJFOC-20250702200

PATIENT
  Age: 50 Year
  Sex: Male
  Weight: 63 kg

DRUGS (4)
  1. INFLIXIMAB [Suspect]
     Active Substance: INFLIXIMAB
     Indication: Crohn^s disease
     Route: 041
     Dates: start: 20170701
  2. REMICADE [Suspect]
     Active Substance: INFLIXIMAB
     Indication: Crohn^s disease
     Route: 041
     Dates: start: 2017
  3. ADALIMUMAB [Suspect]
     Active Substance: ADALIMUMAB
     Indication: Product used for unknown indication
     Route: 065
     Dates: start: 202108
  4. AZATHIOPRINE [Suspect]
     Active Substance: AZATHIOPRINE
     Indication: Product used for unknown indication
     Route: 065
     Dates: start: 2017

REACTIONS (10)
  - Perineal abscess [Unknown]
  - Crohn^s disease [Not Recovered/Not Resolved]
  - Anorectal operation [Unknown]
  - Proctitis [Unknown]
  - Anal fistula [Unknown]
  - Weight fluctuation [Unknown]
  - Ageusia [Unknown]
  - Candida infection [Unknown]
  - Lymphocytic oesophagitis [Unknown]
  - Haemorrhage [Unknown]

NARRATIVE: CASE EVENT DATE: 20170501
